FAERS Safety Report 20089576 (Version 1)
Quarter: 2021Q4

REPORT INFORMATION
  Report Type: Spontaneous
  Country: CA (occurrence: CA)
  Receive Date: 20211119
  Receipt Date: 20211119
  Transmission Date: 20220303
  Serious: Yes (Hospitalization, Other)
  Sender: FDA-Public Use
  Company Number: CA-BRISTOL-MYERS SQUIBB COMPANY-BMS-2021-121933

PATIENT
  Age: 53 Year
  Sex: Female

DRUGS (2)
  1. OPDIVO [Suspect]
     Active Substance: NIVOLUMAB
     Indication: Metastatic malignant melanoma
     Dosage: 75 MILLIGRAM
     Route: 042
  2. YERVOY [Suspect]
     Active Substance: IPILIMUMAB
     Indication: Metastatic malignant melanoma
     Dosage: 200 MILLIGRAM
     Route: 042

REACTIONS (5)
  - Autoimmune hepatitis [Recovering/Resolving]
  - Dehydration [Recovering/Resolving]
  - Hepatic enzyme increased [Recovering/Resolving]
  - Malaise [Recovering/Resolving]
  - Off label use [Unknown]
